FAERS Safety Report 16460001 (Version 2)
Quarter: 2019Q2

REPORT INFORMATION
  Report Type: Spontaneous
  Country: US (occurrence: US)
  Receive Date: 20190620
  Receipt Date: 20190628
  Transmission Date: 20190711
  Serious: No
  Sender: FDA-Public Use
  Company Number: PHEH2019US025677

PATIENT
  Sex: Male

DRUGS (1)
  1. TIMOLOL MALEATE. [Suspect]
     Active Substance: TIMOLOL MALEATE
     Indication: PRODUCT USED FOR UNKNOWN INDICATION
     Dosage: 0.5 %, BID
     Route: 065

REACTIONS (2)
  - Product dispensing issue [Unknown]
  - Product quality issue [Unknown]
